FAERS Safety Report 11026486 (Version 1)
Quarter: 2015Q2

REPORT INFORMATION
  Report Type: Spontaneous
  Country: US (occurrence: US)
  Receive Date: 20150414
  Receipt Date: 20150414
  Transmission Date: 20150821
  Serious: No
  Sender: FDA-Public Use
  Company Number: US-TEVA-551430USA

PATIENT
  Age: 28 Year
  Sex: Female

DRUGS (6)
  1. GARLIC OIL [Concomitant]
     Active Substance: GARLIC OIL
  2. FISH OIL [Concomitant]
     Active Substance: FISH OIL
  3. COPAXONE [Suspect]
     Active Substance: GLATIRAMER ACETATE
     Indication: MULTIPLE SCLEROSIS
     Dosage: 17.1429 MILLIGRAM DAILY;
  4. VITAMIN D [Concomitant]
     Active Substance: CHOLECALCIFEROL
  5. CINNAMON OIL [Concomitant]
     Active Substance: CINNAMON OIL
  6. FLAXSEED [Concomitant]
     Active Substance: FLAX SEED

REACTIONS (5)
  - Nausea [Unknown]
  - Dizziness [Unknown]
  - Feeling abnormal [Unknown]
  - Hangover [Unknown]
  - Product contamination physical [Unknown]
